FAERS Safety Report 6295453-0 (Version None)
Quarter: 2009Q3

REPORT INFORMATION
  Report Type: 
  Country: None (occurrence: None)
  Receive Date: 20090730
  Receipt Date: 20090722
  Transmission Date: 20100115
  Serious: No
  Sender: FDA-Public Use
  Company Number: 2009-201138-NL

PATIENT
  Sex: Male

DRUGS (4)
  1. DEXAMETHASONE [Suspect]
     Dosage: INTRA_UTERINE
     Route: 015
  2. MERCAPTOPURINE [Suspect]
     Indication: ACUTE PROMYELOCYTIC LEUKAEMIA
     Dosage: INTRA_ARTICULAR
     Route: 014
  3. RETINOIC ACID [Suspect]
     Indication: ACUTE PROMYELOCYTIC LEUKAEMIA
     Dosage: INTRA-UTERINE
     Route: 015
  4. CORTICOSTEROID NOS [Suspect]
     Dosage: INTRA_UTERINE
     Route: 015

REACTIONS (5)
  - FOETAL DISTRESS SYNDROME [None]
  - JAUNDICE NEONATAL [None]
  - MATERNAL DRUGS AFFECTING FOETUS [None]
  - NERVOUS SYSTEM DISORDER [None]
  - PREMATURE BABY [None]
